FAERS Safety Report 24454057 (Version 2)
Quarter: 2024Q4

REPORT INFORMATION
  Report Type: Report from Study
  Country: PK (occurrence: PK)
  Receive Date: 20241017
  Receipt Date: 20241018
  Transmission Date: 20250115
  Serious: No
  Sender: ROCHE
  Company Number: PK-ROCHE-3465763

PATIENT
  Age: 47 Year
  Sex: Female

DRUGS (1)
  1. RITUXIMAB [Suspect]
     Active Substance: RITUXIMAB
     Indication: Microscopic polyangiitis
     Dosage: 4 CYCLES
     Route: 042
     Dates: start: 20231117

REACTIONS (2)
  - Intercepted product prescribing error [Unknown]
  - No adverse event [Unknown]
